FAERS Safety Report 9152014 (Version 1)
Quarter: 2013Q1

REPORT INFORMATION
  Report Type: Report from Study
  Country: BE (occurrence: BE)
  Receive Date: 20130308
  Receipt Date: 20130308
  Transmission Date: 20140127
  Serious: Yes (Hospitalization)
  Sender: FDA-Public Use
  Company Number: BE-GLAXOSMITHKLINE-B0870936A

PATIENT
  Age: 76 Year
  Sex: Female
  Weight: 52 kg

DRUGS (5)
  1. PAZOPANIB [Suspect]
     Indication: NON-SMALL CELL LUNG CANCER
     Route: 048
     Dates: start: 20130107, end: 20130217
  2. EMCONCOR [Concomitant]
     Indication: HYPERTENSION
     Dosage: 5MG PER DAY
     Route: 048
     Dates: start: 20121106, end: 20130219
  3. ZESTRIL [Concomitant]
     Indication: HYPERTENSION
     Dates: start: 20130115, end: 20130218
  4. PLAVIX [Concomitant]
     Dosage: 75MG PER DAY
  5. ASAFLOW [Concomitant]
     Dosage: 80MG PER DAY
     Dates: start: 20130107, end: 20130218

REACTIONS (2)
  - Atrial fibrillation [Recovered/Resolved]
  - Dehydration [Recovered/Resolved]
